FAERS Safety Report 4971199-3 (Version None)
Quarter: 2006Q1

REPORT INFORMATION
  Report Type: 
  Country: None (occurrence: None)
  Receive Date: 20060216
  Receipt Date: 20040303
  Transmission Date: 20060701
  Serious: Yes (Other)
  Sender: FDA-Public Use
  Company Number: 2004IM000407

PATIENT
  Age: 67 Year
  Sex: Female
  Weight: 59.648 kg

DRUGS (11)
  1. INTERFERON GAMMA-1B [Suspect]
     Indication: OVARIAN CANCER
     Dosage: 100 UG, TIW, SUBCUTANEOUS
     Route: 058
     Dates: start: 20030210, end: 20030220
  2. CARBOPLATIN [Suspect]
     Indication: OVARIAN CANCER
     Dosage: 695 MG, Q3W, INTRAVENOUS
     Route: 042
     Dates: start: 20030210, end: 20030210
  3. PACLITAXEL [Suspect]
     Indication: OVARIAN CANCER
     Dosage: 295 MG, Q3W, INTRAVENOUS
     Route: 042
     Dates: start: 20030210, end: 20030210
  4. KYTRIL [Concomitant]
  5. DEXAMETHASONE [Concomitant]
  6. COMPAZINE [Concomitant]
  7. BENADRYL [Concomitant]
  8. ZANTAC [Concomitant]
  9. ATIVAN [Concomitant]
  10. TINOLOL [Concomitant]
  11. PREVACID [Concomitant]

REACTIONS (1)
  - LEUKOPENIA [None]
